FAERS Safety Report 22100573 (Version 2)
Quarter: 2023Q1

REPORT INFORMATION
  Report Type: Spontaneous
  Country: DE (occurrence: DE)
  Receive Date: 20230316
  Receipt Date: 20230331
  Transmission Date: 20230417
  Serious: Yes (Death, Other)
  Sender: FDA-Public Use
  Company Number: DE-AMGEN-DEUSP2023042147

PATIENT

DRUGS (3)
  1. BEVACIZUMAB [Suspect]
     Active Substance: BEVACIZUMAB
     Indication: Radiation injury
     Dosage: UNK
     Route: 065
  2. BEVACIZUMAB [Suspect]
     Active Substance: BEVACIZUMAB
     Indication: Off label use
  3. DEXAMETHASONE [Concomitant]
     Active Substance: DEXAMETHASONE
     Indication: Radiation injury
     Dosage: UNK
     Route: 065

REACTIONS (14)
  - Malignant neoplasm progression [Fatal]
  - Brain oedema [Fatal]
  - Brain death [Fatal]
  - Status epilepticus [Fatal]
  - Embolism [Fatal]
  - Haemorrhage [Fatal]
  - Sepsis [Fatal]
  - Febrile neutropenia [Fatal]
  - Nervous system disorder [Fatal]
  - Drug effective for unapproved indication [Unknown]
  - Radiation injury [Unknown]
  - Gastrointestinal toxicity [Unknown]
  - Hypersensitivity [Unknown]
  - Off label use [Unknown]
